FAERS Safety Report 10232323 (Version 1)
Quarter: 2014Q2

REPORT INFORMATION
  Report Type: Spontaneous
  Country: PL (occurrence: PL)
  Receive Date: 20140612
  Receipt Date: 20140612
  Transmission Date: 20141212
  Serious: Yes (Death, Hospitalization, Disabling, Other)
  Sender: FDA-Public Use
  Company Number: PL-RANBAXY-2014RR-82230

PATIENT
  Age: 36 Year
  Sex: Female

DRUGS (4)
  1. BISOPROLOL [Suspect]
     Dosage: UNK
     Route: 065
  2. LACIDIPINE [Suspect]
     Indication: HYPERTENSION
     Dosage: UNK
     Route: 065
  3. IBUPROFEN [Suspect]
     Indication: PRODUCT USED FOR UNKNOWN INDICATION
     Dosage: 1 DF
     Route: 065
  4. CLARITHROMYCIN [Suspect]
     Indication: TOXIC EPIDERMAL NECROLYSIS
     Dosage: UNK
     Route: 065

REACTIONS (5)
  - Toxic epidermal necrolysis [Unknown]
  - Multi-organ failure [Fatal]
  - Septic shock [Unknown]
  - Abscess [Unknown]
  - Hemiparesis [Unknown]
